FAERS Safety Report 9394596 (Version 1)
Quarter: 2013Q3

REPORT INFORMATION
  Report Type: Spontaneous
  Country: US (occurrence: US)
  Receive Date: 20130711
  Receipt Date: 20130711
  Transmission Date: 20140515
  Serious: Yes (Hospitalization)
  Sender: FDA-Public Use
  Company Number: US-SANOFI-AVENTIS-2013SA069404

PATIENT
  Age: 26 Year
  Sex: Female

DRUGS (2)
  1. IFOSFAMIDE [Suspect]
     Indication: RHABDOMYOSARCOMA RECURRENT
     Dosage: DOSE:23.4 GRAM(S)/SQUARE METER
     Route: 065
  2. DESMOPRESSIN ACETATE [Suspect]
     Indication: NEPHROGENIC DIABETES INSIPIDUS
     Route: 045

REACTIONS (14)
  - Nephrogenic diabetes insipidus [Recovered/Resolved]
  - Asthenia [Recovered/Resolved]
  - Polydipsia [Recovered/Resolved]
  - Polyuria [Recovered/Resolved]
  - Urine osmolarity decreased [Recovered/Resolved]
  - Fanconi syndrome [Unknown]
  - Hypovolaemia [Unknown]
  - Pancytopenia [Recovered/Resolved]
  - Skin turgor decreased [Unknown]
  - Acidosis hyperchloraemic [Unknown]
  - Hypophosphataemia [Unknown]
  - Hypokalaemia [Unknown]
  - Venous pressure jugular decreased [Unknown]
  - Off label use [Unknown]
